FAERS Safety Report 8298439-X (Version None)
Quarter: 2012Q2

REPORT INFORMATION
  Report Type: 
  Country: None (occurrence: None)
  Receive Date: 20120419
  Receipt Date: 20120418
  Transmission Date: 20120825
  Serious: Yes (Other)
  Sender: FDA-Public Use
  Company Number: CN-ROCHE-1060944

PATIENT
  Age: 40 Year
  Sex: Female

DRUGS (3)
  1. PEGINTERFERON ALFA-2A [Suspect]
     Indication: HEPATITIS C
     Route: 058
     Dates: start: 20110130, end: 20111201
  2. RIBAVIRIN (NON-ROCHE/NON-COMPARATOR) [Concomitant]
     Indication: HEPATITIS C
     Route: 048
     Dates: start: 20111130
  3. PEGINTERFERON ALFA-2A [Suspect]
     Route: 058
     Dates: start: 20111228

REACTIONS (1)
  - WHITE BLOOD CELL COUNT DECREASED [None]
